FAERS Safety Report 6141277-4 (Version None)
Quarter: 2009Q1

REPORT INFORMATION
  Report Type: 
  Country: None (occurrence: None)
  Receive Date: 20090330
  Receipt Date: 20090330
  Transmission Date: 20090719
  Serious: Yes (Other)
  Sender: FDA-Public Use
  Company Number: None

PATIENT
  Age: 9 Year
  Sex: Female
  Weight: 26.3086 kg

DRUGS (2)
  1. FLOVENT [Suspect]
     Indication: ASTHMA
     Dosage: 2 PUFFS 2X A DAY INHAL
     Route: 055
     Dates: start: 20081001, end: 20090131
  2. ADVAIR HFA [Suspect]
     Indication: ASTHMA
     Dosage: 2 PUFFS 2X A DAY INHAL
     Route: 055
     Dates: start: 20090201, end: 20090326

REACTIONS (3)
  - DRUG INEFFECTIVE [None]
  - DYSPNOEA [None]
  - PRODUCT QUALITY ISSUE [None]
